FAERS Safety Report 4463918-X (Version None)
Quarter: 2004Q4

REPORT INFORMATION
  Report Type: 
  Country: None (occurrence: None)
  Receive Date: 20041001
  Receipt Date: 20040819
  Transmission Date: 20050328
  Serious: Yes (Hospitalization)
  Sender: FDA-Public Use
  Company Number: US-AMGEN-US087842

PATIENT
  Age: 74 Year
  Sex: Female

DRUGS (5)
  1. SENSIPAR [Suspect]
     Indication: HYPERPARATHYROIDISM SECONDARY
     Route: 048
     Dates: start: 20040625, end: 20040630
  2. EPOGEN [Concomitant]
  3. NEURONTIN [Concomitant]
  4. RENAGEL [Concomitant]
  5. CELEBREX [Concomitant]

REACTIONS (5)
  - DYSPNOEA [None]
  - NAUSEA [None]
  - NON-CARDIAC CHEST PAIN [None]
  - TREATMENT NONCOMPLIANCE [None]
  - TREMOR [None]
